FAERS Safety Report 18614997 (Version 1)
Quarter: 2020Q4

REPORT INFORMATION
  Report Type: Report from Study
  Country: US (occurrence: US)
  Receive Date: 20201214
  Receipt Date: 20201214
  Transmission Date: 20210114
  Serious: Yes (Hospitalization)
  Sender: FDA-Public Use
  Company Number: US-SHIRE-US201844848

PATIENT
  Age: 59 Year
  Sex: Female
  Weight: 43.99 kg

DRUGS (12)
  1. CARVEDILOL. [Concomitant]
     Active Substance: CARVEDILOL
     Indication: CARDIOMYOPATHY
  2. CREON [Concomitant]
     Active Substance: PANCRELIPASE AMYLASE\PANCRELIPASE LIPASE\PANCRELIPASE PROTEASE
     Indication: MALABSORPTION
  3. SELENIUM [Concomitant]
     Active Substance: SELENIUM
     Indication: MINERAL DEFICIENCY
     Dosage: 200 MILLIGRAM, QD
     Route: 048
     Dates: start: 20100908
  4. TEDUGLUTIDE [Suspect]
     Active Substance: TEDUGLUTIDE
     Indication: SHORT-BOWEL SYNDROME
     Dosage: 2 MG (0.05 MG/KG), 7 DOSES PER WEEK
     Route: 065
     Dates: start: 20130404
  5. TEDUGLUTIDE [Suspect]
     Active Substance: TEDUGLUTIDE
     Indication: SHORT-BOWEL SYNDROME
     Dosage: 2 MG (0.05 MG/KG), 7 DOSES PER WEEK
     Route: 065
     Dates: start: 20130404
  6. DAPAGLIFLOZIN. [Concomitant]
     Active Substance: DAPAGLIFLOZIN
     Indication: DIABETES MELLITUS
  7. SPIRONOLACTONE. [Concomitant]
     Active Substance: SPIRONOLACTONE
     Indication: CARDIOMYOPATHY
     Dosage: 25 MILLIGRAM, QD
     Route: 048
     Dates: start: 20200930
  8. TEDUGLUTIDE [Suspect]
     Active Substance: TEDUGLUTIDE
     Indication: SHORT-BOWEL SYNDROME
     Dosage: 2 MG (0.05 MG/KG), 7 DOSES PER WEEK
     Route: 065
     Dates: start: 20130404
  9. PAREGORIC [Concomitant]
     Active Substance: MORPHINE
     Indication: ILEOSTOMY
  10. FORTEO [Concomitant]
     Active Substance: TERIPARATIDE
     Indication: OSTEOPOROSIS
     Dosage: 600 MILLIGRAM, QD
     Route: 048
     Dates: start: 20170823
  11. TEDUGLUTIDE [Suspect]
     Active Substance: TEDUGLUTIDE
     Indication: SHORT-BOWEL SYNDROME
     Dosage: 2 MG (0.05 MG/KG), 7 DOSES PER WEEK
     Route: 065
     Dates: start: 20130404
  12. PAREGORIC [MORPHINE] [Concomitant]
     Indication: ILEOSTOMY
     Dosage: 2 MILLIGRAM, PRN
     Route: 048

REACTIONS (8)
  - Abdominal pain [Recovered/Resolved]
  - Nausea [Recovered/Resolved]
  - Pancreatitis acute [Recovered/Resolved]
  - Hypovolaemia [Recovered/Resolved]
  - Vomiting [Recovered/Resolved]
  - Abdominal distension [Recovered/Resolved]
  - Diarrhoea [Recovered/Resolved]
  - Dehydration [Recovered/Resolved]

NARRATIVE: CASE EVENT DATE: 20171101
